FAERS Safety Report 10672429 (Version 1)
Quarter: 2014Q4

REPORT INFORMATION
  Report Type: Spontaneous
  Country: US (occurrence: None)
  Receive Date: 20141222
  Receipt Date: 20141222
  Transmission Date: 20150529
  Serious: Yes (Life-Threatening, Hospitalization, Other)
  Sender: FDA-Public Use
  Company Number: None

PATIENT
  Age: 92 Year
  Sex: Female
  Weight: 67.13 kg

DRUGS (1)
  1. NIFEDIPINE ER [Suspect]
     Active Substance: NIFEDIPINE
     Indication: HYPERTENSION
     Dosage: 1 PILL A DAU
     Dates: start: 20140908, end: 20141109

REACTIONS (3)
  - Product odour abnormal [None]
  - Product substitution issue [None]
  - Cardiac failure [None]
